FAERS Safety Report 13434428 (Version 1)
Quarter: 2017Q2

REPORT INFORMATION
  Report Type: Spontaneous
  Country: US (occurrence: US)
  Receive Date: 20170412
  Receipt Date: 20170412
  Transmission Date: 20170830
  Serious: No
  Sender: FDA-Public Use
  Company Number: None

PATIENT
  Age: 21 Year

DRUGS (1)
  1. AMPYRA [Suspect]
     Active Substance: DALFAMPRIDINE
     Dates: start: 20160607

REACTIONS (5)
  - Impulse-control disorder [None]
  - Muscular weakness [None]
  - Anger [None]
  - Urinary tract infection [None]
  - Refusal of treatment by patient [None]

NARRATIVE: CASE EVENT DATE: 20170329
